FAERS Safety Report 8774023 (Version 4)
Quarter: 2012Q4

REPORT INFORMATION
  Report Type: 
  Country: FR (occurrence: FR)
  Receive Date: 20120907
  Receipt Date: 20121105
  Transmission Date: 20130627
  Serious: Yes (Hospitalization)
  Sender: FDA-Public Use
  Company Number: FR-EISAI INC-E7389-02951-SPO-FR

PATIENT
  Age: 70 Year
  Sex: Female

DRUGS (9)
  1. HALAVEN [Suspect]
     Indication: METASTATIC BREAST CANCER
     Route: 041
     Dates: start: 20120803, end: 20120810
  2. OFLOXACINE [Suspect]
     Indication: FEBRILE NEUTROPENIA
     Route: 042
     Dates: start: 20120815, end: 20120823
  3. CEFTRIAXONE [Suspect]
     Indication: FEBRILE NEUTROPENIA
     Route: 042
     Dates: start: 20120815, end: 20120823
  4. ZARZIO [Suspect]
     Indication: FEBRILE NEUTROPENIA
     Dosage: 30 MIU
     Route: 042
     Dates: start: 20120816, end: 20120818
  5. KARDEGIC [Concomitant]
     Route: 048
  6. BISOPROLOL [Concomitant]
     Route: 048
  7. CAPTEA [Concomitant]
     Route: 048
  8. VIRLIX [Concomitant]
     Route: 048
  9. CLARITYNE [Concomitant]
     Route: 048

REACTIONS (2)
  - Renal failure acute [Recovered/Resolved]
  - Febrile neutropenia [Recovered/Resolved]
